FAERS Safety Report 8591656-0 (Version None)
Quarter: 2012Q2

REPORT INFORMATION
  Report Type: 
  Country: None (occurrence: None)
  Receive Date: 20120423
  Receipt Date: 20100215
  Transmission Date: 20120825
  Serious: Yes (Hospitalization)
  Sender: FDA-Public Use
  Company Number: PHHY2010US08803

PATIENT
  Age: 49 Year
  Sex: Female
  Weight: 70 kg

DRUGS (2)
  1. EXJADE [Suspect]
     Indication: SPINAL CORD DISORDER
     Dosage: 1250 MG DAILY, ORAL
     Route: 048
  2. RADIATION THERAPY (NO INGREDIENTS/SUBSTANCES) [Concomitant]

REACTIONS (1)
  - IRON OVERLOAD [None]
